FAERS Safety Report 21589294 (Version 1)
Quarter: 2022Q4

REPORT INFORMATION
  Report Type: Spontaneous
  Country: US (occurrence: US)
  Receive Date: 20221114
  Receipt Date: 20221114
  Transmission Date: 20230113
  Serious: No
  Sender: FDA-Public Use
  Company Number: US-PFIZER INC-202201293321

PATIENT
  Age: 70 Year
  Sex: Female

DRUGS (1)
  1. IBRANCE [Suspect]
     Active Substance: PALBOCICLIB
     Dosage: 75 MG, CYCLIC (TAKE 1 TAB DAILY ON DAYS 1-14 OF 28 DAY CYCLE)

REACTIONS (3)
  - Platelet count decreased [Unknown]
  - Off label use [Unknown]
  - Product use issue [Unknown]
